FAERS Safety Report 6718717-2 (Version None)
Quarter: 2010Q2

REPORT INFORMATION
  Report Type: 
  Country: None (occurrence: None)
  Receive Date: 20100505
  Receipt Date: 20100420
  Transmission Date: 20101027
  Serious: Yes (Hospitalization, Other)
  Sender: FDA-Public Use
  Company Number: JPI-P-009700

PATIENT
  Age: 42 Year
  Sex: Female

DRUGS (33)
  1. XYREM [Suspect]
     Indication: FIBROMYALGIA
     Dosage: SEE IMAGE
     Route: 048
     Dates: start: 20070904, end: 20070919
  2. XYREM [Suspect]
     Indication: FIBROMYALGIA
     Dosage: SEE IMAGE
     Route: 048
     Dates: start: 20070920, end: 20071023
  3. XYREM [Suspect]
     Indication: FIBROMYALGIA
     Dosage: SEE IMAGE
     Route: 048
     Dates: start: 20071024, end: 20071106
  4. XYREM [Suspect]
     Indication: FIBROMYALGIA
     Dosage: SEE IMAGE
     Route: 048
     Dates: start: 20071107, end: 20071126
  5. XYREM [Suspect]
     Indication: FIBROMYALGIA
     Dosage: SEE IMAGE
     Route: 048
     Dates: start: 20071127, end: 20071211
  6. XYREM [Suspect]
     Indication: FIBROMYALGIA
     Dosage: SEE IMAGE
     Route: 048
     Dates: start: 20071212, end: 20071231
  7. XYREM [Suspect]
     Indication: FIBROMYALGIA
     Dosage: SEE IMAGE
     Route: 048
     Dates: start: 20080101, end: 20080219
  8. XYREM [Suspect]
     Indication: FIBROMYALGIA
     Dosage: SEE IMAGE
     Route: 048
     Dates: start: 20080101, end: 20080219
  9. XYREM [Suspect]
     Indication: FIBROMYALGIA
     Dosage: SEE IMAGE
     Route: 048
     Dates: start: 20080220, end: 20080304
  10. XYREM [Suspect]
     Indication: FIBROMYALGIA
     Dosage: SEE IMAGE
     Route: 048
     Dates: start: 20080220, end: 20080304
  11. XYREM [Suspect]
     Indication: FIBROMYALGIA
     Dosage: SEE IMAGE
     Route: 048
     Dates: start: 20080305, end: 20080408
  12. XYREM [Suspect]
     Indication: FIBROMYALGIA
     Dosage: SEE IMAGE
     Route: 048
     Dates: start: 20080305, end: 20080408
  13. XYREM [Suspect]
     Indication: FIBROMYALGIA
     Dosage: SEE IMAGE
     Route: 048
     Dates: start: 20080409, end: 20080603
  14. XYREM [Suspect]
     Indication: FIBROMYALGIA
     Dosage: SEE IMAGE
     Route: 048
     Dates: start: 20080409, end: 20080603
  15. XYREM [Suspect]
     Indication: FIBROMYALGIA
     Dosage: SEE IMAGE
     Route: 048
     Dates: start: 20080604, end: 20090310
  16. XYREM [Suspect]
     Indication: FIBROMYALGIA
     Dosage: SEE IMAGE
     Route: 048
     Dates: start: 20080604, end: 20090310
  17. XYREM [Suspect]
     Indication: FIBROMYALGIA
     Dosage: SEE IMAGE
     Route: 048
     Dates: start: 20090311, end: 20090407
  18. XYREM [Suspect]
     Indication: FIBROMYALGIA
     Dosage: SEE IMAGE
     Route: 048
     Dates: start: 20090408, end: 20090505
  19. XYREM [Suspect]
     Indication: FIBROMYALGIA
     Dosage: SEE IMAGE
     Route: 048
     Dates: start: 20090408, end: 20090505
  20. XYREM [Suspect]
     Indication: FIBROMYALGIA
     Dosage: SEE IMAGE
     Route: 048
     Dates: start: 20090408, end: 20090505
  21. XYREM [Suspect]
     Indication: FIBROMYALGIA
     Dosage: SEE IMAGE
     Route: 048
     Dates: start: 20090506, end: 20100115
  22. XYREM [Suspect]
     Indication: FIBROMYALGIA
     Dosage: SEE IMAGE
     Route: 048
     Dates: start: 20100123, end: 20100125
  23. XYREM [Suspect]
     Indication: FIBROMYALGIA
     Dosage: SEE IMAGE
     Route: 048
     Dates: start: 20100126, end: 20100129
  24. XYREM [Suspect]
     Indication: FIBROMYALGIA
     Dosage: SEE IMAGE
     Route: 048
     Dates: start: 20100130, end: 20100130
  25. XYREM [Suspect]
     Indication: FIBROMYALGIA
     Dosage: SEE IMAGE
     Route: 048
     Dates: start: 20100131, end: 20100223
  26. XYREM [Suspect]
     Indication: FIBROMYALGIA
     Dosage: SEE IMAGE
     Route: 048
     Dates: start: 20100224
  27. TOPIRAMATE [Concomitant]
  28. MODAFINIL [Concomitant]
  29. ACETAMINOPHEN AND OXYCODONE HCL [Concomitant]
  30. TRAMADOL HCL [Concomitant]
  31. IRON SUCROSE [Concomitant]
  32. ESCITALOPRAM [Concomitant]
  33. SENNA [Concomitant]

REACTIONS (2)
  - CHOLELITHIASIS [None]
  - PANCREATITIS [None]
